FAERS Safety Report 11660713 (Version 1)
Quarter: 2015Q4

REPORT INFORMATION
  Report Type: Spontaneous
  Country: BR (occurrence: BR)
  Receive Date: 20151026
  Receipt Date: 20151026
  Transmission Date: 20160304
  Serious: Yes (Hospitalization)
  Sender: FDA-Public Use
  Company Number: BR-ELI_LILLY_AND_COMPANY-BR201510004122

PATIENT
  Age: 42 Year
  Sex: Male
  Weight: 57 kg

DRUGS (5)
  1. HUMULIN N [Suspect]
     Active Substance: INSULIN HUMAN
     Indication: TYPE 2 DIABETES MELLITUS
     Dosage: 10 IU, EACH MORNING
     Route: 058
     Dates: start: 201410
  2. HUMULIN N [Suspect]
     Active Substance: INSULIN HUMAN
     Dosage: 8 IU, AT DINNER
     Route: 058
     Dates: start: 201410
  3. HUMULIN N [Suspect]
     Active Substance: INSULIN HUMAN
     Dosage: 8 IU, AT LUNCH
     Route: 058
     Dates: start: 201410
  4. HUMALOG [Suspect]
     Active Substance: INSULIN LISPRO
     Indication: TYPE 2 DIABETES MELLITUS
     Dosage: UNK, PRN
     Route: 058
     Dates: start: 201410
  5. HUMULIN N [Suspect]
     Active Substance: INSULIN HUMAN
     Dosage: 6 IU, BEFORE SLEEPING
     Route: 058
     Dates: start: 201410

REACTIONS (6)
  - Visual impairment [Recovering/Resolving]
  - Malaise [Recovering/Resolving]
  - Asthenia [Recovering/Resolving]
  - Diabetic complication [Recovering/Resolving]
  - Renal impairment [Recovering/Resolving]
  - Blood pressure abnormal [Recovering/Resolving]

NARRATIVE: CASE EVENT DATE: 20150912
